FAERS Safety Report 11782501 (Version 1)
Quarter: 2015Q4

REPORT INFORMATION
  Report Type: Spontaneous
  Country: US (occurrence: US)
  Receive Date: 20151127
  Receipt Date: 20151127
  Transmission Date: 20160305
  Serious: No
  Sender: FDA-Public Use
  Company Number: US-TEVA-612677ACC

PATIENT
  Sex: Female

DRUGS (2)
  1. PARAGARD T 380A [Suspect]
     Active Substance: COPPER
     Dates: start: 20150901, end: 20151019
  2. PARAGARD T 380A [Suspect]
     Active Substance: COPPER
     Dates: start: 20151019

REACTIONS (1)
  - Device expulsion [Recovered/Resolved]
